FAERS Safety Report 6774662-8 (Version None)
Quarter: 2010Q2

REPORT INFORMATION
  Report Type: 
  Country: None (occurrence: None)
  Receive Date: 20100617
  Receipt Date: 20100608
  Transmission Date: 20101027
  Serious: Yes (Death, Other)
  Sender: FDA-Public Use
  Company Number: US-ROCHE-696381

PATIENT
  Sex: Male

DRUGS (1)
  1. XELODA [Suspect]
     Indication: DRUG USE FOR UNKNOWN INDICATION
     Route: 065

REACTIONS (5)
  - COLITIS ISCHAEMIC [None]
  - DEATH [None]
  - LARGE INTESTINE PERFORATION [None]
  - PNEUMONIA [None]
  - RESPIRATORY FAILURE [None]
